FAERS Safety Report 10891811 (Version 8)
Quarter: 2016Q1

REPORT INFORMATION
  Report Type: Report from Study
  Country: US (occurrence: US)
  Receive Date: 20150306
  Receipt Date: 20160115
  Transmission Date: 20160525
  Serious: Yes (Hospitalization)
  Sender: FDA-Public Use
  Company Number: US-PFIZER INC-2015070741

PATIENT
  Age: 68 Year
  Sex: Female

DRUGS (28)
  1. IMODIUM [Concomitant]
     Active Substance: LOPERAMIDE HYDROCHLORIDE
     Dosage: 2 DF, UNK
     Dates: start: 20150201
  2. ASPIRIN. [Concomitant]
     Active Substance: ASPIRIN
     Dosage: 81 MG, DAILY
     Dates: start: 20130725, end: 20140813
  3. VERAPAMIL HCL [Concomitant]
     Active Substance: VERAPAMIL HYDROCHLORIDE
     Dosage: 240 MG, UNK
     Dates: start: 200901
  4. ONDANSETRON [Concomitant]
     Active Substance: ONDANSETRON
     Dosage: 40 MG, DAILY
     Dates: start: 20130725
  5. IRINOTECAN HCL [Suspect]
     Active Substance: IRINOTECAN HYDROCHLORIDE
     Indication: COLON CANCER
     Dosage: 290 MG(165MG/M2), CYCLIC,  ONCE IN 2 WEEKS
     Route: 042
     Dates: start: 20150107
  6. HYDROCODONE BITARTRATE AND ACETAMINOPHEN [Concomitant]
     Active Substance: ACETAMINOPHEN\HYDROCODONE BITARTRATE
  7. ONDANSETRON [Concomitant]
     Active Substance: ONDANSETRON
     Dosage: 40 MG, UNK
     Dates: start: 20130805
  8. BEVACIZUMAB [Suspect]
     Active Substance: BEVACIZUMAB
     Indication: COLON CANCER
     Dosage: 5 MG/KG, CYCLIC, (1 IN 2 WEEKS)
     Route: 042
     Dates: start: 20130805
  9. LOSARTAN POTASSIUM. [Concomitant]
     Active Substance: LOSARTAN POTASSIUM
     Dosage: 100 MG, 2X/DAY
     Dates: start: 20130731, end: 20130909
  10. LOSARTAN POTASSIUM. [Concomitant]
     Active Substance: LOSARTAN POTASSIUM
     Dosage: 100 MG, UNK
     Dates: start: 20090101
  11. SERTRALINE HYDROCHLORIDE. [Concomitant]
     Active Substance: SERTRALINE HYDROCHLORIDE
     Dosage: 50 MG, DAILY
     Dates: start: 20090101
  12. HYDROCHLOROTHIAZIDE/LOSARTAN POTASSIUM [Concomitant]
     Dosage: 1 DF, UNK
     Dates: start: 20130910
  13. FLUOROURACIL. [Suspect]
     Active Substance: FLUOROURACIL
     Dosage: 400 MG/M2, CYCLIC (1 IN 2 WEEKS)
     Route: 040
     Dates: start: 20130805
  14. FLUOROURACIL. [Suspect]
     Active Substance: FLUOROURACIL
     Dosage: 3500 MG, CYCLIC (1 IN 2 WEEKS)
     Route: 042
     Dates: start: 20150107
  15. CAPECITABINE. [Suspect]
     Active Substance: CAPECITABINE
     Indication: COLON CANCER
     Dosage: 850 MG/M2, CYCLIC (2 WEEK OF 3)
     Route: 048
     Dates: start: 20131204
  16. LEVOFOLINATE [Suspect]
     Active Substance: LEVOLEUCOVORIN CALCIUM
     Indication: COLON CANCER
     Dosage: 176 MG, CYCLIC (LAST DOSE PRIOR TO EVENT 338 MG, 1 IN 2 WEEK)
     Route: 042
     Dates: start: 20130805
  17. VERAPAMIL HCL [Concomitant]
     Active Substance: VERAPAMIL HYDROCHLORIDE
     Dosage: 240 MG, UNK
     Route: 065
  18. IRINOTECAN HCL [Suspect]
     Active Substance: IRINOTECAN HYDROCHLORIDE
     Dosage: UNK
  19. LOSARTAN POTASSIUM. [Concomitant]
     Active Substance: LOSARTAN POTASSIUM
     Dosage: 1 DF, UNK
     Dates: start: 20130910
  20. VERAPAMIL HCL [Concomitant]
     Active Substance: VERAPAMIL HYDROCHLORIDE
     Dosage: 240 MG, UNK
     Route: 065
     Dates: start: 200001
  21. FLUOROURACIL. [Suspect]
     Active Substance: FLUOROURACIL
     Indication: COLON CANCER
     Dosage: 2400 MG/M2, CYCLIC (650 MG/ 4054 MG, 1 IN 2 WEEKS)
     Route: 042
     Dates: start: 20130805
  22. FENOFIBRATE. [Concomitant]
     Active Substance: FENOFIBRATE
     Dosage: 134 MG, DAILY
     Dates: start: 200901
  23. PROMETHAZINE [Concomitant]
     Active Substance: PROMETHAZINE\PROMETHAZINE HYDROCHLORIDE
     Dosage: 25 MG, UNK
     Dates: start: 20130808
  24. VITAMIN B12 [Concomitant]
     Active Substance: CYANOCOBALAMIN
     Dosage: 1000 MG, UNK
     Dates: start: 20130903
  25. BEVACIZUMAB [Suspect]
     Active Substance: BEVACIZUMAB
     Dosage: 354 MG, CYCLIC, (1 IN 2 WEEKS)
     Route: 042
     Dates: start: 20130805
  26. OXALIPLATIN. [Suspect]
     Active Substance: OXALIPLATIN
     Indication: COLON CANCER
     Dosage: 85 MG/M2, CYCLIC, ONCE IN 2 WEEKS
     Route: 042
     Dates: start: 20130805
  27. IMODIUM [Concomitant]
     Active Substance: LOPERAMIDE HYDROCHLORIDE
     Dosage: 2 DF, AS NEEDED
     Dates: start: 20150204, end: 20150211
  28. PROMETHAZINE [Concomitant]
     Active Substance: PROMETHAZINE\PROMETHAZINE HYDROCHLORIDE
     Dosage: 25 MG, DAILY
     Dates: start: 20130725

REACTIONS (3)
  - Abdominal pain [Recovered/Resolved]
  - Gastroenteritis [Recovered/Resolved]
  - Hypertensive crisis [Recovered/Resolved]

NARRATIVE: CASE EVENT DATE: 20130810
